FAERS Safety Report 25225654 (Version 1)
Quarter: 2025Q2

REPORT INFORMATION
  Report Type: Spontaneous
  Country: JP (occurrence: JP)
  Receive Date: 20250422
  Receipt Date: 20250422
  Transmission Date: 20250717
  Serious: Yes (Death, Hospitalization, Other)
  Sender: CHEPLAPHARM
  Company Number: JP-CHEPLA-2025005061

PATIENT
  Age: 50 Year
  Sex: Male
  Weight: 50 kg

DRUGS (2)
  1. OLANZAPINE [Suspect]
     Active Substance: OLANZAPINE
     Indication: Schizophrenia
     Dosage: 20 MG/DAY?DAILY DOSE: 20 MILLIGRAM
  2. RISPERIDONE [Suspect]
     Active Substance: RISPERIDONE
     Indication: Schizophrenia
     Dosage: 2 MG/DAY?DAILY DOSE: 2 MILLIGRAM

REACTIONS (6)
  - Multiple organ dysfunction syndrome [Fatal]
  - Heat stroke [Fatal]
  - Acute kidney injury [Unknown]
  - Pleural effusion [Unknown]
  - Gastrointestinal oedema [Unknown]
  - Disseminated intravascular coagulation [Unknown]
